FAERS Safety Report 8669933 (Version 3)
Quarter: 2012Q4

REPORT INFORMATION
  Report Type: Report from Study
  Country: CA (occurrence: CA)
  Receive Date: 20120718
  Receipt Date: 20120919
  Transmission Date: 20130627
  Serious: Yes (Hospitalization)
  Sender: FDA-Public Use
  Company Number: CA-JNJFOC-20120705734

PATIENT
  Age: 23 None
  Sex: Male
  Weight: 67 kg

DRUGS (2)
  1. REMICADE [Suspect]
     Indication: CROHN^S DISEASE
     Route: 042
     Dates: start: 200911
  2. REMICADE [Suspect]
     Indication: CROHN^S DISEASE
     Route: 042
     Dates: end: 20120711

REACTIONS (7)
  - Surgery [Unknown]
  - Surgery [Unknown]
  - Pyrexia [Unknown]
  - Abdominal pain upper [Unknown]
  - Asthenia [Unknown]
  - Pallor [Unknown]
  - Infection [Unknown]
